FAERS Safety Report 16787732 (Version 1)
Quarter: 2019Q3

REPORT INFORMATION
  Report Type: Spontaneous
  Country: PL (occurrence: PL)
  Receive Date: 20190909
  Receipt Date: 20190909
  Transmission Date: 20191005
  Serious: Yes (Hospitalization)
  Sender: FDA-Public Use
  Company Number: PL-MYLANLABS-2019M1083425

PATIENT
  Age: 3 Month
  Sex: Female

DRUGS (16)
  1. GANCICLOVIR. [Suspect]
     Active Substance: GANCICLOVIR
     Indication: PRODUCT USED FOR UNKNOWN INDICATION
     Dosage: UNK
  2. ABACAVIR. [Concomitant]
     Active Substance: ABACAVIR
     Dosage: UNK
  3. SULFAMETHIZOLE W/TRIMETHOPRIM [Concomitant]
     Active Substance: SULFAMETHIZOLE\TRIMETHOPRIM
     Dosage: UNK
  4. DOBUTAMINE [Concomitant]
     Active Substance: DOBUTAMINE HYDROCHLORIDE
     Dosage: UNK
  5. LOPINAVIR + RITONAVIR [Concomitant]
     Active Substance: LOPINAVIR\RITONAVIR
     Dosage: UNK
  6. FLUCONAZOLE. [Concomitant]
     Active Substance: FLUCONAZOLE
     Dosage: UNK
  7. CEFUROXIME. [Suspect]
     Active Substance: CEFUROXIME
     Indication: PRODUCT USED FOR UNKNOWN INDICATION
     Dosage: UNK
     Route: 042
  8. CEFTRIAXONE. [Concomitant]
     Active Substance: CEFTRIAXONE
     Dosage: UNK
  9. METHYLPREDNISOLONE. [Concomitant]
     Active Substance: METHYLPREDNISOLONE
     Dosage: UNK
  10. ABACAVIR + LAMIVUDIN [Concomitant]
     Active Substance: ABACAVIR\LAMIVUDINE
     Dosage: UNK
  11. MEROPENEM. [Concomitant]
     Active Substance: MEROPENEM
     Dosage: UNK
  12. CLARITHROMYCIN. [Suspect]
     Active Substance: CLARITHROMYCIN
     Indication: OPPORTUNISTIC INFECTION PROPHYLAXIS
     Dosage: UNK
  13. VANCOMYCIN [Concomitant]
     Active Substance: VANCOMYCIN
     Dosage: UNK
  14. CEFTRIAXONE. [Concomitant]
     Active Substance: CEFTRIAXONE
     Dosage: UNK
  15. FILGRASTI M [Concomitant]
     Dosage: UNK
  16. AMPHOTERICINUM B [Concomitant]
     Active Substance: AMPHOTERICIN B
     Dosage: UNK

REACTIONS (2)
  - Respiratory failure [Recovered/Resolved]
  - Neutropenia [Recovered/Resolved]
